FAERS Safety Report 9292469 (Version 2)
Quarter: 2013Q2

REPORT INFORMATION
  Report Type: Spontaneous
  Country: JP (occurrence: JP)
  Receive Date: 20130516
  Receipt Date: 20130516
  Transmission Date: 20140414
  Serious: Yes (Hospitalization)
  Sender: FDA-Public Use
  Company Number: JP-BAYER-2013-049533

PATIENT
  Age: 38 Year
  Sex: Female

DRUGS (10)
  1. AVELOX [Suspect]
     Indication: ACUTE TONSILLITIS
     Dosage: UNK
     Route: 048
     Dates: start: 2006
  2. AVELOX [Suspect]
     Indication: PHARYNGITIS
     Dosage: 400 MG, QD
     Route: 048
     Dates: start: 20130319
  3. LOXIPAIN [Suspect]
     Route: 048
  4. EMPYNASE P [Concomitant]
     Indication: SPUTUM RETENTION
     Dosage: 18000 DF, TID
     Route: 048
     Dates: start: 20130319
  5. EMPYNASE P [Concomitant]
     Indication: ANTIINFLAMMATORY THERAPY
  6. IPD [Concomitant]
     Indication: OROPHARYNGEAL DISCOMFORT
     Dosage: 100 MG, TID
     Route: 048
     Dates: start: 20130319
  7. IPD [Concomitant]
     Indication: COUGH
  8. MUCOSTA [Concomitant]
     Indication: GASTRITIS PROPHYLAXIS
     Dosage: 100 MG, TID
     Route: 048
     Dates: start: 20130319
  9. MUCOSOLVAN L [Concomitant]
     Indication: SPUTUM RETENTION
     Dosage: 45 MG, QD
     Route: 048
     Dates: start: 20130319
  10. HUSCODE [Concomitant]
     Indication: COUGH
     Dosage: UNK
     Route: 048
     Dates: start: 20130319

REACTIONS (3)
  - Altered state of consciousness [Recovered/Resolved]
  - Hypoaesthesia oral [Recovered/Resolved]
  - Vomiting [Recovered/Resolved]
